FAERS Safety Report 13659297 (Version 1)
Quarter: 2017Q2

REPORT INFORMATION
  Report Type: Spontaneous
  Country: FR (occurrence: FR)
  Receive Date: 20170616
  Receipt Date: 20170616
  Transmission Date: 20170830
  Serious: Yes (Hospitalization)
  Sender: FDA-Public Use
  Company Number: FR-CELGENEUS-FRA-20170604461

PATIENT
  Age: 74 Year
  Sex: Female
  Weight: 71 kg

DRUGS (21)
  1. CLOPIDOGREL [Concomitant]
     Active Substance: CLOPIDOGREL BISULFATE
     Indication: CAROTID ARTERY THROMBOSIS
     Dosage: 75 MILLIGRAM
     Route: 048
     Dates: start: 2000
  2. DEXAMETHASONE ORAL [Suspect]
     Active Substance: DEXAMETHASONE
     Indication: PLASMA CELL MYELOMA
     Dosage: 2.8571 MILLIGRAM
     Route: 048
     Dates: start: 20160721, end: 20170327
  3. FLUDEX-SR [Concomitant]
     Active Substance: INDAPAMIDE
     Indication: HYPERTENSION
     Dosage: 1.5 MILLIGRAM
     Route: 048
     Dates: start: 2005
  4. PLAVIX [Concomitant]
     Active Substance: CLOPIDOGREL BISULFATE
     Indication: THROMBOSIS PROPHYLAXIS
     Dosage: 75 MILLIGRAM
     Route: 048
     Dates: start: 20160721
  5. MAGNESIUM [Concomitant]
     Active Substance: MAGNESIUM
     Indication: HYPOMAGNESAEMIA
     Dosage: 200 MILLIGRAM
     Route: 048
     Dates: start: 20161003
  6. DIFFU K [Concomitant]
     Active Substance: POTASSIUM CHLORIDE
     Indication: HYPOKALAEMIA
     Dosage: 5.4 MILLIGRAM
     Route: 048
     Dates: start: 20170105
  7. SPECIAFOLDINE [Concomitant]
     Active Substance: FOLIC ACID
     Indication: ANAEMIA OF MALIGNANT DISEASE
     Dosage: 5 MILLIGRAM
     Route: 048
     Dates: start: 20160615
  8. OROZAMUDOL [Concomitant]
     Active Substance: TRAMADOL
     Indication: HEADACHE
     Dosage: 150 MILLIGRAM
     Route: 048
     Dates: start: 20170105
  9. DARATUMUMAB [Suspect]
     Active Substance: DARATUMUMAB
     Indication: PLASMA CELL MYELOMA
     Dosage: 1135 MILLIGRAM
     Route: 041
     Dates: start: 20160721, end: 20170509
  10. MONOTILDIEM [Concomitant]
     Active Substance: DILTIAZEM
     Indication: HYPERTENSION
     Dosage: 300 MILLIGRAM
     Route: 048
     Dates: start: 2005
  11. IXPRIM [Concomitant]
     Active Substance: ACETAMINOPHEN\TRAMADOL HYDROCHLORIDE
     Indication: BONE PAIN
     Dosage: 225 MILLIGRAM
     Route: 048
     Dates: start: 201607
  12. URAPIDIL [Concomitant]
     Active Substance: URAPIDIL
     Indication: HYPERTENSION
     Dosage: 120 MILLIGRAM
     Route: 048
     Dates: start: 2005
  13. PENTACARINAT [Concomitant]
     Active Substance: PENTAMIDINE ISETHIONATE
     Indication: INFECTION PARASITIC
     Dosage: 10 MILLIGRAM
     Route: 055
     Dates: start: 20160822
  14. UVEDOSE [Concomitant]
     Active Substance: CHOLECALCIFEROL
     Indication: VITAMIN D DEFICIENCY
     Dosage: 3333.3333 IU (INTERNATIONAL UNIT)
     Route: 030
     Dates: start: 20170306
  15. REVLIMID [Suspect]
     Active Substance: LENALIDOMIDE
     Indication: PLASMA CELL MYELOMA
     Route: 048
     Dates: start: 20160721, end: 20170529
  16. CETIRIZINE [Concomitant]
     Active Substance: CETIRIZINE HYDROCHLORIDE
     Indication: URTICARIA CHRONIC
     Dosage: 10 MILLIGRAM
     Route: 048
     Dates: start: 2010
  17. PARACETAMOL [Concomitant]
     Active Substance: ACETAMINOPHEN
     Indication: HEADACHE
     Dosage: 4 GRAM
     Route: 048
     Dates: start: 20161226
  18. LACRIFLUID [Concomitant]
     Active Substance: CARBOMER
     Indication: ALTERED VISUAL DEPTH PERCEPTION
     Route: 047
     Dates: start: 20170105
  19. PANTOPRAZOLE [Concomitant]
     Active Substance: PANTOPRAZOLE
     Indication: PAIN PROPHYLAXIS
     Dosage: 20 MILLIGRAM
     Route: 048
     Dates: start: 20160615
  20. DUPHALAC [Concomitant]
     Active Substance: LACTULOSE
     Indication: CONSTIPATION PROPHYLAXIS
     Route: 048
     Dates: start: 20160615
  21. GAVISCON [Concomitant]
     Active Substance: ALUMINUM HYDROXIDE\MAGNESIUM CARBONATE
     Indication: GASTRITIS
     Dosage: 40 MILLILITER
     Route: 048
     Dates: start: 20170105

REACTIONS (2)
  - Bone lesion [Not Recovered/Not Resolved]
  - Pain [Not Recovered/Not Resolved]

NARRATIVE: CASE EVENT DATE: 20170529
